FAERS Safety Report 6989327-7 (Version None)
Quarter: 2010Q3

REPORT INFORMATION
  Report Type: 
  Country: None (occurrence: None)
  Receive Date: 20100916
  Receipt Date: 20100908
  Transmission Date: 20110219
  Serious: Yes (Hospitalization)
  Sender: FDA-Public Use
  Company Number: US-AMGEN-KDL437464

PATIENT
  Sex: Female
  Weight: 83.1 kg

DRUGS (5)
  1. PROCRIT [Suspect]
     Indication: ANAEMIA OF MALIGNANT DISEASE
     Dates: start: 20100810
  2. PLAVIX [Concomitant]
     Dates: end: 20100801
  3. ASPIRIN [Concomitant]
     Dates: end: 20100801
  4. ANTINEOPLASTIC AGENTS [Concomitant]
  5. RADIATION THERAPY [Concomitant]

REACTIONS (5)
  - ASTHENIA [None]
  - CENTRAL VENOUS CATHETERISATION [None]
  - DIARRHOEA [None]
  - HOSPITALISATION [None]
  - NAUSEA [None]
